FAERS Safety Report 6246189-3 (Version None)
Quarter: 2009Q2

REPORT INFORMATION
  Report Type: 
  Country: None (occurrence: None)
  Receive Date: 20090626
  Receipt Date: 20090622
  Transmission Date: 20091009
  Serious: Yes (Hospitalization)
  Sender: FDA-Public Use
  Company Number: FR-BIOGENIDEC-2009BI019075

PATIENT
  Age: 32 Year
  Sex: Female

DRUGS (2)
  1. AVONEX [Suspect]
     Indication: MULTIPLE SCLEROSIS
     Route: 030
     Dates: start: 20070514, end: 20070604
  2. EFFEXOR [Concomitant]
     Indication: DYSTHYMIC DISORDER
     Route: 048

REACTIONS (2)
  - INFLUENZA LIKE ILLNESS [None]
  - PERICARDITIS [None]
